FAERS Safety Report 9626178 (Version 1)
Quarter: 2013Q4

REPORT INFORMATION
  Report Type: Spontaneous
  Country: US (occurrence: None)
  Receive Date: 20131015
  Receipt Date: 20131015
  Transmission Date: 20140711
  Serious: Yes (Other)
  Sender: FDA-Public Use
  Company Number: None

PATIENT
  Age: 2 Year
  Sex: Female
  Weight: 14.06 kg

DRUGS (2)
  1. BADGER SUNSCREEN BROAD SPECTRUM SPF 16 [Suspect]
     Indication: SUNBURN
  2. BADGER SUNSCREEN BROAD SPECTRUM SPF 16 [Suspect]
     Indication: PROPHYLAXIS

REACTIONS (1)
  - Pseudomonas test positive [None]
